FAERS Safety Report 9252100 (Version 2)
Quarter: 2013Q2

REPORT INFORMATION
  Report Type: Spontaneous
  Country: US (occurrence: US)
  Receive Date: 20130424
  Receipt Date: 20130621
  Transmission Date: 20140414
  Serious: No
  Sender: FDA-Public Use
  Company Number: US-PFIZER INC-2013111900

PATIENT
  Age: 27 Year
  Sex: Male
  Weight: 57.14 kg

DRUGS (1)
  1. XYNTHA SOLOFUSE [Suspect]
     Indication: FACTOR VIII DEFICIENCY
     Dosage: 20 IU/KG,WEEKLY (DIVIDED OVER 3 TIMES PER WEEK)

REACTIONS (2)
  - Off label use [Unknown]
  - Joint injury [Unknown]
